FAERS Safety Report 5630369-1 (Version None)
Quarter: 2008Q1

REPORT INFORMATION
  Report Type: 
  Country: None (occurrence: None)
  Receive Date: 20080219
  Receipt Date: 20080214
  Transmission Date: 20080703
  Serious: Yes (Life-Threatening, Hospitalization)
  Sender: FDA-Public Use
  Company Number: ES-BRISTOL-MYERS SQUIBB COMPANY-14077333

PATIENT
  Age: 77 Year
  Sex: Male

DRUGS (6)
  1. METFORMIN HCL [Suspect]
     Indication: DIABETES MELLITUS
     Route: 048
  2. PARACETAMOL [Suspect]
  3. METAMIZOLE [Suspect]
  4. GLICLAZIDE [Concomitant]
  5. TAMSULOSIN HCL [Concomitant]
  6. NEBIVOLOL HCL [Concomitant]

REACTIONS (1)
  - RENAL FAILURE [None]
